FAERS Safety Report 21486341 (Version 1)
Quarter: 2022Q4

REPORT INFORMATION
  Report Type: Spontaneous
  Country: US (occurrence: US)
  Receive Date: 20221020
  Receipt Date: 20221020
  Transmission Date: 20230112
  Serious: No
  Sender: FDA-Public Use
  Company Number: US-TARO PHARMACEUTICALS USA INC.-2022TAR00568

PATIENT

DRUGS (1)
  1. CLOTRIMAZOLE [Suspect]
     Active Substance: CLOTRIMAZOLE
     Indication: Fungal infection
     Dosage: SOME, MORNING AND NIGHT,TOPICAL TO FACE, AROUND NOSE AND MOUTH
     Route: 061

REACTIONS (1)
  - Dry skin [Not Recovered/Not Resolved]
